FAERS Safety Report 7584926-6 (Version None)
Quarter: 2011Q2

REPORT INFORMATION
  Report Type: 
  Country: None (occurrence: None)
  Receive Date: 20110630
  Receipt Date: 20080724
  Transmission Date: 20111010
  Serious: Yes (Other)
  Sender: FDA-Public Use
  Company Number: US-BAYER-200811580NA

PATIENT
  Sex: Female
  Weight: 105.22 kg

DRUGS (14)
  1. MAGNEVIST [Suspect]
     Indication: NUCLEAR MAGNETIC RESONANCE IMAGING
     Dates: start: 20050601, end: 20050601
  2. PHENOBARBITAL TAB [Concomitant]
     Dosage: 500MG PM
     Route: 048
  3. PHOSLO [Concomitant]
     Dosage: 1-2 WITH MEALS AND SNACKS
     Route: 048
  4. NEPHROCAPS [Concomitant]
     Dosage: UNK UNK, QD
     Route: 048
  5. OSCAL [Concomitant]
  6. MAGNEVIST [Suspect]
     Dosage: UNK
     Route: 042
     Dates: start: 20060414
  7. OPTIMARK [Suspect]
     Indication: NUCLEAR MAGNETIC RESONANCE IMAGING
     Dates: start: 20050601, end: 20050615
  8. MAGNEVIST [Suspect]
     Indication: ANGIOGRAM
     Dosage: UNK
     Dates: start: 20050901
  9. PHENOBARBITAL TAB [Concomitant]
     Indication: CONVULSION
     Dosage: 400MG AM
     Route: 048
  10. ACETYLSALICYLIC ACID SRT [Concomitant]
     Dosage: 325MG
     Route: 048
  11. OMNISCAN [Suspect]
     Dates: start: 20050601, end: 20050601
  12. FOLATE SODIUM [Concomitant]
     Dosage: 1 MG
     Route: 048
     Dates: start: 20050930
  13. MIDODRINE HYDROCHLORIDE [Concomitant]
     Indication: HYPOTENSION
     Dosage: 5MG PREDIALYSIS
  14. MULTIHANCE [Suspect]
     Indication: NUCLEAR MAGNETIC RESONANCE IMAGING
     Dates: start: 20050601, end: 20050615

REACTIONS (6)
  - EXTREMITY CONTRACTURE [None]
  - PAIN [None]
  - NEPHROGENIC SYSTEMIC FIBROSIS [None]
  - ANHEDONIA [None]
  - FIBROSIS [None]
  - JOINT CONTRACTURE [None]
